FAERS Safety Report 4451977-X (Version None)
Quarter: 2004Q3

REPORT INFORMATION
  Report Type: 
  Country: None (occurrence: None)
  Receive Date: 20040915
  Receipt Date: 20040915
  Transmission Date: 20050211
  Serious: Yes (Hospitalization)
  Sender: FDA-Public Use
  Company Number: None

PATIENT
  Age: 82 Year
  Sex: Female
  Weight: 61.6892 kg

DRUGS (21)
  1. BIVALIRUDIN [Suspect]
     Indication: THROMBOSIS PROPHYLAXIS
     Dosage: 0.75 MG/KG THEN 1.4 MG/KG/HR
     Dates: start: 20040507
  2. CLOPIDOGREL [Suspect]
     Indication: ANTIPLATELET THERAPY
     Dosage: 75MG PO DAILY
     Route: 048
  3. PRAVACHOL [Concomitant]
  4. TOPROL-XL [Concomitant]
  5. NEXIUM [Concomitant]
  6. LEXAPRO [Concomitant]
  7. RISPERDAL [Concomitant]
  8. KLONOPIN [Concomitant]
  9. QUININE [Concomitant]
  10. DARVOCET [Concomitant]
  11. FOSAMAX [Concomitant]
  12. ALLEGRA [Concomitant]
  13. PLAVIX [Concomitant]
  14. BECONASE AQ [Concomitant]
  15. PATANOL [Concomitant]
  16. ASPIRIN [Concomitant]
  17. FISH OIL [Concomitant]
  18. VIT A,B,E [Concomitant]
  19. CENTRUM [Concomitant]
  20. MIROLAX [Concomitant]
  21. MOM [Concomitant]

REACTIONS (9)
  - ABDOMINAL WALL DISORDER [None]
  - ARTERIAL HAEMORRHAGE [None]
  - CATHETER SITE HAEMORRHAGE [None]
  - DYSPNOEA [None]
  - HAEMODYNAMIC INSTABILITY [None]
  - HYPOTENSION [None]
  - POST PROCEDURAL COMPLICATION [None]
  - POST PROCEDURAL HAEMATOMA [None]
  - POST PROCEDURAL HAEMORRHAGE [None]
